FAERS Safety Report 6128675-X (Version None)
Quarter: 2009Q1

REPORT INFORMATION
  Report Type: 
  Country: None (occurrence: None)
  Receive Date: 20090323
  Receipt Date: 20090310
  Transmission Date: 20090719
  Serious: Yes (Hospitalization, Other)
  Sender: FDA-Public Use
  Company Number: FR-PFIZER INC-2009181930

PATIENT

DRUGS (12)
  1. GABAPENTIN [Suspect]
     Dosage: 300 MG, 6X/DAY
     Route: 048
     Dates: start: 20090120, end: 20090202
  2. OFLOXACINE [Suspect]
     Route: 048
     Dates: start: 20090106, end: 20090202
  3. PIPERACILLIN SODIUM AND TAZOBACTAM SODIUM [Suspect]
     Dosage: 4 G/500MG, 3X/DAY
     Route: 042
     Dates: start: 20090110, end: 20090202
  4. KETOPROFEN [Suspect]
     Route: 048
     Dates: start: 20090120, end: 20090202
  5. ALPRAZOLAM [Concomitant]
     Dosage: UNK
  6. PANTOPRAZOLE [Concomitant]
     Route: 048
     Dates: start: 20090109, end: 20090122
  7. TRAMADOL CHLORHYDRATE [Concomitant]
     Dates: start: 20090106, end: 20090124
  8. KETOPROFEN [Concomitant]
     Dates: start: 20090120
  9. DALTEPARINE SODIQUE [Concomitant]
     Dosage: UNK
  10. CITALOPRAM BROMHYDRATE [Concomitant]
     Dosage: UNK
  11. PARACETAMOL [Concomitant]
     Dosage: 1 G
     Route: 048
     Dates: start: 20090120, end: 20090129
  12. RACECADOTRIL [Concomitant]
     Dosage: UNK

REACTIONS (1)
  - AGRANULOCYTOSIS [None]
